FAERS Safety Report 24000383 (Version 1)
Quarter: 2024Q2

REPORT INFORMATION
  Report Type: Report from Study
  Country: US (occurrence: US)
  Receive Date: 20240621
  Receipt Date: 20240621
  Transmission Date: 20240716
  Serious: Yes (Other)
  Sender: FDA-Public Use
  Company Number: US-ALNYLAM PHARMACEUTICALS, INC.-ALN-2024-003419

PATIENT

DRUGS (3)
  1. OXLUMO [Suspect]
     Active Substance: LUMASIRAN
     Indication: Product used for unknown indication
     Dosage: 3 MILLIGRAM/KILOGRAM, ONCE EVERY 28 DAYS
     Route: 058
     Dates: start: 20231129, end: 20231129
  2. OXLUMO [Suspect]
     Active Substance: LUMASIRAN
     Dosage: 3 MILLIGRAM/KILOGRAM, ONCE EVERY 28 DAYS
     Route: 058
     Dates: start: 20240525, end: 20240525
  3. OXLUMO [Suspect]
     Active Substance: LUMASIRAN
     Dosage: 3 MILLIGRAM/KILOGRAM, ONCE EVERY 28 DAYS
     Route: 058
     Dates: start: 20240605, end: 20240605

REACTIONS (4)
  - Renal failure [Unknown]
  - Unevaluable event [Unknown]
  - Dialysis [Unknown]
  - Decreased appetite [Unknown]
